FAERS Safety Report 22523098 (Version 7)
Quarter: 2025Q1

REPORT INFORMATION
  Report Type: Report from Study
  Country: US (occurrence: US)
  Receive Date: 20230606
  Receipt Date: 20250110
  Transmission Date: 20250409
  Serious: Yes (Other)
  Sender: ACADIA PHARMACEUTICALS
  Company Number: US-ACADIA PHARMACEUTICALS INC.-ACA-2023-PIM-001859

PATIENT
  Sex: Female

DRUGS (4)
  1. NUPLAZID [Suspect]
     Active Substance: PIMAVANSERIN TARTRATE
     Indication: Parkinson^s disease psychosis
     Dosage: 34 MILLIGRAM, QD
     Route: 048
  2. NUPLAZID [Suspect]
     Active Substance: PIMAVANSERIN TARTRATE
     Indication: Parkinson^s disease
     Dosage: 34 MILLIGRAM, QD
     Route: 048
     Dates: start: 202307
  3. NUPLAZID [Suspect]
     Active Substance: PIMAVANSERIN TARTRATE
     Dosage: 34 MILLIGRAM, QD
     Route: 048
  4. REMERON [Concomitant]
     Active Substance: MIRTAZAPINE

REACTIONS (18)
  - Hallucination [Not Recovered/Not Resolved]
  - Hallucination, tactile [Not Recovered/Not Resolved]
  - Hallucination, visual [Not Recovered/Not Resolved]
  - Hallucination [Unknown]
  - Speech disorder [Unknown]
  - Thinking abnormal [Unknown]
  - Communication disorder [Unknown]
  - Hypersomnia [Unknown]
  - Joint swelling [Unknown]
  - Fear of crowded places [Not Recovered/Not Resolved]
  - Psychotic disorder [Recovering/Resolving]
  - Delusion [Not Recovered/Not Resolved]
  - Palpitations [Not Recovered/Not Resolved]
  - Delusion [Not Recovered/Not Resolved]
  - Paranoia [Not Recovered/Not Resolved]
  - Anxiety [Not Recovered/Not Resolved]
  - Delusion [Unknown]
  - Overdose [Unknown]

NARRATIVE: CASE EVENT DATE: 20230101
